FAERS Safety Report 20935164 (Version 1)
Quarter: 2022Q2

REPORT INFORMATION
  Report Type: Spontaneous
  Country: RU (occurrence: None)
  Receive Date: 20220608
  Receipt Date: 20220608
  Transmission Date: 20220721
  Serious: Yes (Other)
  Sender: FDA-Public Use
  Company Number: RU-ROCHE-3103660

PATIENT

DRUGS (3)
  1. TRASTUZUMAB [Suspect]
     Active Substance: TRASTUZUMAB
     Indication: Breast cancer
     Route: 041
     Dates: start: 20210322
  2. PERTUZUMAB [Suspect]
     Active Substance: PERTUZUMAB
     Indication: Breast cancer
     Route: 041
     Dates: start: 20210322
  3. DOCETAXEL [Suspect]
     Active Substance: DOCETAXEL
     Indication: Breast cancer
     Route: 065
     Dates: start: 20210322

REACTIONS (10)
  - Leukoencephalopathy [Unknown]
  - Ovarian mass [Unknown]
  - Ovarian disorder [Unknown]
  - Uterine leiomyoma [Unknown]
  - Breast fibrosis [Unknown]
  - Hepatic lesion [Unknown]
  - Splenic cyst [Unknown]
  - Osteosclerosis [Unknown]
  - Hepatomegaly [Unknown]
  - Lymphocele [Unknown]

NARRATIVE: CASE EVENT DATE: 20210419
